FAERS Safety Report 7765189-5 (Version None)
Quarter: 2011Q3

REPORT INFORMATION
  Report Type: 
  Country: None (occurrence: None)
  Receive Date: 20110921
  Receipt Date: 20110916
  Transmission Date: 20111222
  Serious: Yes (Hospitalization)
  Sender: FDA-Public Use
  Company Number: US-GLAXOSMITHKLINE-A0808743A

PATIENT
  Age: 51 Year
  Sex: Female
  Weight: 113.2 kg

DRUGS (5)
  1. LISINOPRIL [Concomitant]
  2. AVAPRO [Concomitant]
  3. GLIPIZIDE [Concomitant]
  4. AVANDIA [Suspect]
     Indication: TYPE 2 DIABETES MELLITUS
     Dosage: 4MG TWICE PER DAY
     Route: 048
     Dates: start: 20040601, end: 20080101
  5. METFORMIN HCL [Concomitant]

REACTIONS (4)
  - MYOCARDIAL INFARCTION [None]
  - HYPERLIPIDAEMIA [None]
  - MYOCARDIAL ISCHAEMIA [None]
  - ANGINA PECTORIS [None]
